FAERS Safety Report 7737226-5 (Version None)
Quarter: 2011Q3

REPORT INFORMATION
  Report Type: 
  Country: None (occurrence: None)
  Receive Date: 20110908
  Receipt Date: 20110901
  Transmission Date: 20111222
  Serious: Yes (Hospitalization, Other)
  Sender: FDA-Public Use
  Company Number: US-ABBOTT-11P-163-0851583-00

PATIENT
  Age: 47 Year
  Sex: Male

DRUGS (12)
  1. PRAVASTATIN [Concomitant]
     Indication: BLOOD CHOLESTEROL INCREASED
     Dosage: DAILY
  2. PLAQUENIL [Concomitant]
     Indication: PRODUCT USED FOR UNKNOWN INDICATION
  3. VENTOLIN HFA [Concomitant]
     Indication: CHRONIC OBSTRUCTIVE PULMONARY DISEASE
  4. HUMIRA [Suspect]
     Indication: RHEUMATOID ARTHRITIS
     Dates: start: 20110513
  5. TRAMADOL HYDROCHLORIDE [Concomitant]
     Indication: PAIN
  6. SPIRIVA [Concomitant]
     Indication: CHRONIC OBSTRUCTIVE PULMONARY DISEASE
     Dosage: DAILY
  7. PREDNISONE [Concomitant]
     Indication: PRODUCT USED FOR UNKNOWN INDICATION
     Dosage: DAILY
  8. NOVALEN R INSULIN [Concomitant]
     Indication: DIABETES MELLITUS
     Dosage: BY SLIDING SCALE 3 TIMES A DAY
  9. LASIX [Concomitant]
     Indication: FLUID RETENTION
     Dosage: DAILY
  10. ADVAIR DISKUS 100/50 [Concomitant]
     Indication: CHRONIC OBSTRUCTIVE PULMONARY DISEASE
  11. NOVALEN N INSULIN [Concomitant]
     Indication: DIABETES MELLITUS
     Dosage: IN THE AM
  12. SPIRONOLACTONE [Concomitant]
     Indication: FLUID RETENTION
     Dosage: DAILY

REACTIONS (4)
  - VARICES OESOPHAGEAL [None]
  - HYPOXIA [None]
  - MELAENA [None]
  - HAEMATEMESIS [None]
